FAERS Safety Report 8419566-X (Version None)
Quarter: 2012Q2

REPORT INFORMATION
  Report Type: 
  Country: None (occurrence: None)
  Receive Date: 20120607
  Receipt Date: 20120515
  Transmission Date: 20120825
  Serious: No
  Sender: FDA-Public Use
  Company Number: US-ASTRAZENECA-2012SE31113

PATIENT
  Age: 69 Year
  Sex: Male
  Weight: 70.3 kg

DRUGS (5)
  1. VITAMIN TAB [Concomitant]
  2. CALCIUM [Concomitant]
  3. ASPIRIN [Concomitant]
  4. COENZYME Q10 [Concomitant]
  5. CRESTOR [Suspect]
     Indication: BLOOD CHOLESTEROL INCREASED
     Route: 048

REACTIONS (1)
  - BACK PAIN [None]
